FAERS Safety Report 12769016 (Version 2)
Quarter: 2016Q3

REPORT INFORMATION
  Report Type: Spontaneous
  Country: DE (occurrence: DE)
  Receive Date: 20160921
  Receipt Date: 20160926
  Transmission Date: 20161109
  Serious: Yes (Disabling, Other)
  Sender: FDA-Public Use
  Company Number: GXKR2016DE004392

PATIENT
  Sex: Female
  Weight: 52 kg

DRUGS (1)
  1. AMOXICLAV 1A PHARMA [Suspect]
     Active Substance: AMOXICILLIN\CLAVULANIC ACID
     Indication: TRACHEOBRONCHITIS
     Dosage: 2-3 DF, QD
     Route: 048
     Dates: start: 20150317

REACTIONS (2)
  - Ageusia [Recovered/Resolved with Sequelae]
  - Anosmia [Recovered/Resolved with Sequelae]

NARRATIVE: CASE EVENT DATE: 201504
